FAERS Safety Report 6800923-X (Version None)
Quarter: 2010Q2

REPORT INFORMATION
  Report Type: 
  Country: None (occurrence: None)
  Receive Date: 20100629
  Receipt Date: 20100617
  Transmission Date: 20101027
  Serious: Yes (Other)
  Sender: FDA-Public Use
  Company Number: PHHY2010US39627

PATIENT
  Sex: Female
  Weight: 66.82 kg

DRUGS (1)
  1. EXJADE [Suspect]
     Indication: HAEMOCHROMATOSIS
     Dosage: 1375 MG/DAY
     Route: 048

REACTIONS (1)
  - RENAL TRANSPLANT [None]
